FAERS Safety Report 10219418 (Version 1)
Quarter: 2014Q2

REPORT INFORMATION
  Report Type: Spontaneous
  Country: US (occurrence: None)
  Receive Date: 20140604
  Receipt Date: 20140604
  Transmission Date: 20141212
  Serious: Yes (Disabling)
  Sender: FDA-Public Use
  Company Number: None

PATIENT
  Age: 38 Year
  Sex: Female
  Weight: 70.31 kg

DRUGS (1)
  1. LEVOQUIN [Suspect]
     Indication: NASOPHARYNGITIS
     Dosage: 1 PILL, TWICE DAILY, TAKEN BY MOUTH
     Route: 048
     Dates: start: 20140303, end: 20140303

REACTIONS (5)
  - Tremor [None]
  - Arthralgia [None]
  - Joint swelling [None]
  - Arthralgia [None]
  - Arthralgia [None]
